FAERS Safety Report 6361214-7 (Version None)
Quarter: 2009Q3

REPORT INFORMATION
  Report Type: 
  Country: None (occurrence: None)
  Receive Date: 20090918
  Receipt Date: 20090908
  Transmission Date: 20100115
  Serious: Yes (Hospitalization, Other)
  Sender: FDA-Public Use
  Company Number: US-PFIZER INC-2009266287

PATIENT
  Age: 49 Year
  Sex: Female

DRUGS (1)
  1. CHANTIX [Suspect]
     Indication: SMOKING CESSATION THERAPY
     Dosage: UNK
     Route: 048
     Dates: start: 20070801

REACTIONS (9)
  - AGGRESSION [None]
  - AGITATION [None]
  - ALCOHOLISM [None]
  - DEPRESSION [None]
  - HALLUCINATION [None]
  - LOSS OF CONSCIOUSNESS [None]
  - MENTAL DISORDER [None]
  - POOR QUALITY SLEEP [None]
  - SUICIDE ATTEMPT [None]
